FAERS Safety Report 4532866-9 (Version None)
Quarter: 2004Q4

REPORT INFORMATION
  Report Type: 
  Country: None (occurrence: None)
  Receive Date: 20041220
  Receipt Date: 20041220
  Transmission Date: 20050328
  Serious: Yes (Hospitalization, Disabling)
  Sender: FDA-Public Use
  Company Number: None

PATIENT
  Age: 47 Year
  Sex: Male
  Weight: 70.3075 kg

DRUGS (4)
  1. VIOXX [Suspect]
     Indication: HYPERSENSITIVITY
     Dosage: 1 TAB/2 TAB    DAY/1WK/2  WK   ORAL
     Route: 048
     Dates: start: 20030130, end: 20030215
  2. WELLBUTRIN [Suspect]
     Indication: HYPERSENSITIVITY
     Dosage: 1 TAB   DAY    ORAL
     Route: 048
     Dates: start: 20030430, end: 20030507
  3. MORPHINE [Concomitant]
  4. ANTIDEPRESSANTS [Concomitant]

REACTIONS (8)
  - ADVERSE DRUG REACTION [None]
  - ARTHRALGIA [None]
  - DRUG TOLERANCE INCREASED [None]
  - FIBROMYALGIA [None]
  - MUSCLE SPASMS [None]
  - MYALGIA [None]
  - PRURITUS [None]
  - URTICARIA [None]
